FAERS Safety Report 14471220 (Version 1)
Quarter: 2018Q1

REPORT INFORMATION
  Report Type: Spontaneous
  Country: US (occurrence: US)
  Receive Date: 20180131
  Receipt Date: 20180131
  Transmission Date: 20180509
  Serious: No
  Sender: FDA-Public Use
  Company Number: US-PRAGMA PHARMACEUTICALS, LLC-2017PRG00005

PATIENT
  Age: 70 Year
  Sex: Male
  Weight: 96.15 kg

DRUGS (8)
  1. KEFLEX [Suspect]
     Active Substance: CEPHALEXIN
     Dosage: 3 DOSAGE UNITS, PER DAY
     Dates: start: 20161227
  2. ALLEGRA [Concomitant]
     Active Substance: FEXOFENADINE HYDROCHLORIDE
  3. KEFLEX [Suspect]
     Active Substance: CEPHALEXIN
     Indication: PROSTATITIS
     Dosage: 3 CAPSULES, PER DAY
     Route: 048
     Dates: start: 20161123, end: 201611
  4. KEFLEX [Suspect]
     Active Substance: CEPHALEXIN
     Indication: URINARY TRACT INFECTION
     Dosage: 2 DOSAGE UNITS, PER DAY
     Route: 048
     Dates: start: 201612, end: 201612
  5. ASPIRIN. [Concomitant]
     Active Substance: ASPIRIN
  6. NEXAVAR [Concomitant]
     Active Substance: SORAFENIB
     Dosage: UNK
     Dates: start: 20161103
  7. KEFLEX [Suspect]
     Active Substance: CEPHALEXIN
     Dosage: 1 DOSAGE UNITS PER DAY
     Dates: start: 201612, end: 201612
  8. LIPITOR [Concomitant]
     Active Substance: ATORVASTATIN CALCIUM

REACTIONS (3)
  - Cough [Unknown]
  - Pre-existing condition improved [Unknown]
  - Nasopharyngitis [Unknown]

NARRATIVE: CASE EVENT DATE: 201612
